FAERS Safety Report 8073941-4 (Version None)
Quarter: 2012Q1

REPORT INFORMATION
  Report Type: 
  Country: None (occurrence: None)
  Receive Date: 20120126
  Receipt Date: 20120119
  Transmission Date: 20120608
  Serious: Yes (Other)
  Sender: FDA-Public Use
  Company Number: GB-PFIZER INC-2011124802

PATIENT
  Age: 54 Year
  Sex: Male

DRUGS (3)
  1. BENDROFLUMETHIAZIDE [Concomitant]
  2. RAMIPRIL [Suspect]
     Indication: HYPERTENSION
     Dosage: 5 MG, UNK
     Route: 048
     Dates: start: 20060909, end: 20061106
  3. CLOZARIL [Suspect]
     Indication: SCHIZOPHRENIA
     Dosage: UNK
     Route: 048
     Dates: start: 20000914

REACTIONS (1)
  - MENTAL IMPAIRMENT [None]
